FAERS Safety Report 11843730 (Version 3)
Quarter: 2015Q4

REPORT INFORMATION
  Report Type: Spontaneous
  Country: US (occurrence: US)
  Receive Date: 20151217
  Receipt Date: 20151217
  Transmission Date: 20160305
  Serious: No
  Sender: FDA-Public Use
  Company Number: US-HOSPIRA-2684122

PATIENT
  Age: 23 Year
  Sex: Male
  Weight: 104.3 kg

DRUGS (1)
  1. ACETYLCYSTEINE. [Suspect]
     Active Substance: ACETYLCYSTEINE
     Indication: OVERDOSE
     Dosage: 1 TIME
     Route: 042
     Dates: start: 20141218, end: 20141218

REACTIONS (4)
  - Product container issue [Recovered/Resolved]
  - Incorrect route of drug administration [Recovered/Resolved]
  - No adverse event [None]
  - Product label issue [Recovered/Resolved]

NARRATIVE: CASE EVENT DATE: 20141218
